FAERS Safety Report 21691819 (Version 1)
Quarter: 2022Q4

REPORT INFORMATION
  Report Type: Spontaneous
  Country: CN (occurrence: CN)
  Receive Date: 20221207
  Receipt Date: 20221207
  Transmission Date: 20230113
  Serious: Yes (Other)
  Sender: FDA-Public Use
  Company Number: None

PATIENT
  Age: 35 Year
  Sex: Female
  Weight: 49 kg

DRUGS (13)
  1. CYCLOPHOSPHAMIDE [Suspect]
     Active Substance: CYCLOPHOSPHAMIDE
     Indication: Preoperative care
     Dosage: 0.88 G, QD (DILUTED WITH 100 ML OF SODIUM CHLORIDE), DOSAGE FORM- INJECTION
     Route: 041
     Dates: start: 20221101, end: 20221101
  2. CYCLOPHOSPHAMIDE [Suspect]
     Active Substance: CYCLOPHOSPHAMIDE
     Indication: Chemotherapy
  3. CYCLOPHOSPHAMIDE [Suspect]
     Active Substance: CYCLOPHOSPHAMIDE
     Indication: Neoplasm malignant
  4. SODIUM CHLORIDE [Suspect]
     Active Substance: SODIUM CHLORIDE
     Indication: Medication dilution
     Dosage: 100 ML, QD (USED TO DILUTE 130 MG EPIRUBICIN)
     Route: 041
     Dates: start: 20221101, end: 20221101
  5. EPIRUBICIN [Suspect]
     Active Substance: EPIRUBICIN
     Indication: Preoperative care
     Dosage: 130 MG, QD (DILUTED WITH 100 ML OF SODIUM CHLORIDE)
     Route: 041
     Dates: start: 20221101, end: 20221101
  6. EPIRUBICIN [Suspect]
     Active Substance: EPIRUBICIN
     Indication: Chemotherapy
  7. EPIRUBICIN [Suspect]
     Active Substance: EPIRUBICIN
     Indication: Neoplasm malignant
  8. SODIUM CHLORIDE [Concomitant]
     Active Substance: SODIUM CHLORIDE
     Indication: Preoperative care
     Dosage: 100 ML, QD (USED TO DILUTE 0.88 G CYCLOPHOSPHAMIDE)
     Route: 041
     Dates: start: 20221101, end: 20221101
  9. SODIUM CHLORIDE [Concomitant]
     Active Substance: SODIUM CHLORIDE
     Indication: Chemotherapy
  10. SODIUM CHLORIDE [Concomitant]
     Active Substance: SODIUM CHLORIDE
     Indication: Neoplasm malignant
  11. DEXTROSE [Concomitant]
     Active Substance: DEXTROSE
     Indication: Preoperative care
     Dosage: 250 ML, QD
     Route: 041
     Dates: start: 20221101, end: 20221101
  12. DEXTROSE [Concomitant]
     Active Substance: DEXTROSE
     Indication: Chemotherapy
  13. DEXTROSE [Concomitant]
     Active Substance: DEXTROSE
     Indication: Neoplasm malignant

REACTIONS (2)
  - Myelosuppression [Recovering/Resolving]
  - Hepatic function abnormal [Recovering/Resolving]

NARRATIVE: CASE EVENT DATE: 20221114
